FAERS Safety Report 23433092 (Version 1)
Quarter: 2024Q1

REPORT INFORMATION
  Report Type: Spontaneous
  Country: CH (occurrence: CH)
  Receive Date: 20240123
  Receipt Date: 20240123
  Transmission Date: 20240410
  Serious: Yes (Hospitalization)
  Sender: FDA-Public Use
  Company Number: None

PATIENT
  Age: 56 Year
  Sex: Male

DRUGS (21)
  1. CEFTRIAXONE SODIUM [Suspect]
     Active Substance: CEFTRIAXONE SODIUM
     Dosage: 2G QD
     Route: 042
     Dates: start: 20231127, end: 20231130
  2. ENOXAPARIN SODIUM [Suspect]
     Active Substance: ENOXAPARIN SODIUM
     Dosage: 20 MG, QD
     Dates: start: 20231128
  3. TORSEMIDE [Suspect]
     Active Substance: TORSEMIDE
     Dosage: 5 MG, QD
     Dates: end: 20231103
  4. TORSEMIDE [Suspect]
     Active Substance: TORSEMIDE
     Dosage: 20 MG, QD
     Dates: start: 20231115, end: 20231203
  5. TORSEMIDE [Suspect]
     Active Substance: TORSEMIDE
     Dosage: 30 MG, QD (MORNING)
     Dates: start: 20231204
  6. NORFLOXACIN [Suspect]
     Active Substance: NORFLOXACIN
     Dosage: 400 MG, QD
     Dates: start: 202310, end: 20231126
  7. NORFLOXACIN [Suspect]
     Active Substance: NORFLOXACIN
     Dosage: 400 MG, QD
     Dates: start: 20231202
  8. NEXIUM [Suspect]
     Active Substance: ESOMEPRAZOLE MAGNESIUM
     Dosage: 20 MG, QD
     Dates: start: 202310
  9. DAFALGAN [Suspect]
     Active Substance: ACETAMINOPHEN
     Dosage: 500 MG, PRN (500 MG 4X/DAY IN R)
     Dates: start: 202310
  10. CHOLESTYRAMINE [Concomitant]
     Active Substance: CHOLESTYRAMINE
     Dosage: 4G 3X/DAY + 4G 2X/DAY IN RESERVE
     Dates: start: 20231107
  11. LACTITOL [Concomitant]
     Active Substance: LACTITOL
     Dosage: 15 ML 3X/DAY + 30 ML 3X/ DAY IN RESERVE
     Dates: start: 202310
  12. XIFAXAN [Concomitant]
     Active Substance: RIFAXIMIN
     Dosage: 550 MG, BID
     Dates: start: 202310
  13. ALDACTONE [Concomitant]
     Active Substance: SPIRONOLACTONE
     Dosage: 150 MG, QD (100 MG 1X/DAY MORNING AND 50 MG 1X/DAY EVENING)
     Dates: start: 202310
  14. THIAMINE HYDROCHLORIDE [Concomitant]
     Active Substance: THIAMINE HYDROCHLORIDE
     Dosage: 300 MG, QD
     Dates: start: 202311
  15. KONAKION [Concomitant]
     Active Substance: PHYTONADIONE
     Dosage: 10 MG, QD
     Dates: start: 20231128
  16. BECOZYME-C FORTE [ASCORBIC ACID;BIOTIN;CALCIUM PANTOTHENATE;CYANOCOBAL [Concomitant]
     Dosage: 1 DF, QD
     Dates: start: 202311
  17. BUTYLSCOPOLAMINE BROMIDE [Concomitant]
     Active Substance: BUTYLSCOPOLAMINE BROMIDE
     Dosage: 10 MG, TID
     Dates: start: 202311
  18. OCTREOTIDE [Concomitant]
     Active Substance: OCTREOTIDE\OCTREOTIDE ACETATE
     Dosage: 50 UG, QH
     Dates: start: 20231127, end: 20231128
  19. OCTREOTIDE [Concomitant]
     Active Substance: OCTREOTIDE\OCTREOTIDE ACETATE
     Dosage: 50 UG, QH
     Dates: start: 202310, end: 202310
  20. ATARAX [Concomitant]
     Active Substance: HYDROXYZINE HYDROCHLORIDE
     Dosage: 12.5 MG 1X/DAY IN RESERVE AT BEDTIME
     Dates: start: 202311
  21. INSULIN PORK\INSULIN PURIFIED PORK [Concomitant]
     Active Substance: INSULIN PORK\INSULIN PURIFIED PORK
     Dosage: UNK, PRN (IN RESERVE)
     Dates: start: 202310

REACTIONS (5)
  - Rash maculo-papular [Recovering/Resolving]
  - Drug eruption [Recovering/Resolving]
  - Pyrexia [Recovering/Resolving]
  - Pruritus [Recovering/Resolving]
  - Eosinophilia [Recovering/Resolving]

NARRATIVE: CASE EVENT DATE: 20231202
